FAERS Safety Report 6497244-4 (Version None)
Quarter: 2009Q4

REPORT INFORMATION
  Report Type: 
  Country: None (occurrence: None)
  Receive Date: 20091215
  Receipt Date: 20090708
  Transmission Date: 20100525
  Serious: No
  Sender: FDA-Public Use
  Company Number: A0797370A

PATIENT
  Sex: Male

DRUGS (1)
  1. AVODART [Suspect]
     Dosage: .5MG PER DAY
     Route: 048
     Dates: start: 20090201, end: 20090501

REACTIONS (3)
  - BREAST ENLARGEMENT [None]
  - ERECTILE DYSFUNCTION [None]
  - SEMEN VOLUME DECREASED [None]
